FAERS Safety Report 4369015-6 (Version None)
Quarter: 2004Q2

REPORT INFORMATION
  Report Type: 
  Country: None (occurrence: None)
  Receive Date: 20040525
  Receipt Date: 20040512
  Transmission Date: 20050107
  Serious: Yes (Hospitalization)
  Sender: FDA-Public Use
  Company Number: GB-JNJFOC-20040502250

PATIENT
  Age: 75 Year
  Sex: Female

DRUGS (5)
  1. REMICADE [Suspect]
     Indication: RHEUMATOID ARTHRITIS
     Dosage: 240 MG, INTRAVENOUS
     Route: 042
     Dates: start: 20030220, end: 20030701
  2. PREDNISOLONE [Concomitant]
  3. HYDROXYUREA (HYDROCYCARBAMIDE) [Concomitant]
  4. IBUPROFEN [Concomitant]
  5. FOSAMAX [Concomitant]

REACTIONS (3)
  - ACUTE MYOCARDIAL INFARCTION [None]
  - HIP SURGERY [None]
  - LEFT VENTRICULAR FAILURE [None]
